FAERS Safety Report 7757384-6 (Version None)
Quarter: 2011Q3

REPORT INFORMATION
  Report Type: 
  Country: None (occurrence: None)
  Receive Date: 20110916
  Receipt Date: 20110810
  Transmission Date: 20111222
  Serious: Yes (Death, Hospitalization, Other)
  Sender: FDA-Public Use
  Company Number: FR-CUBIST-2011S1000191

PATIENT
  Age: 50 Year
  Sex: Male

DRUGS (8)
  1. RIFAMYCIN [Concomitant]
     Indication: PRODUCT USED FOR UNKNOWN INDICATION
     Route: 065
     Dates: start: 20110102, end: 20110103
  2. OXACILLIN [Concomitant]
     Indication: PRODUCT USED FOR UNKNOWN INDICATION
     Route: 065
     Dates: start: 20110102, end: 20110103
  3. GENTAMICIN [Concomitant]
     Indication: PRODUCT USED FOR UNKNOWN INDICATION
     Route: 065
  4. CUBICIN [Suspect]
     Indication: INFECTION
     Route: 042
     Dates: start: 20110103, end: 20110103
  5. HYDROCORTISONE [Concomitant]
     Indication: PRODUCT USED FOR UNKNOWN INDICATION
     Route: 065
     Dates: start: 20110102, end: 20110103
  6. VANCOMYCIN [Concomitant]
     Indication: PRODUCT USED FOR UNKNOWN INDICATION
     Route: 065
     Dates: start: 20110103, end: 20110103
  7. CUBICIN [Suspect]
     Indication: ENDOCARDITIS
     Route: 042
     Dates: start: 20110103, end: 20110103
  8. CLINDAMYCIN PHOSPHATE [Concomitant]
     Indication: PRODUCT USED FOR UNKNOWN INDICATION
     Route: 065
     Dates: start: 20110102, end: 20110103

REACTIONS (9)
  - NECROSIS [None]
  - ACUTE RESPIRATORY DISTRESS SYNDROME [None]
  - CONCOMITANT DISEASE AGGRAVATED [None]
  - DRUG INEFFECTIVE [None]
  - LACTIC ACIDOSIS [None]
  - THROMBOCYTOPENIA [None]
  - HYPERGLYCAEMIA [None]
  - RENAL FAILURE [None]
  - ACUTE LUNG INJURY [None]
